FAERS Safety Report 4357424-0 (Version None)
Quarter: 2004Q2

REPORT INFORMATION
  Report Type: 
  Country: None (occurrence: None)
  Receive Date: 20040506
  Receipt Date: 20040503
  Transmission Date: 20050107
  Serious: Yes (Life-Threatening, Other)
  Sender: FDA-Public Use
  Company Number: HQWYE792119DEC03

PATIENT
  Age: 50 Year
  Sex: Male

DRUGS (3)
  1. CORDARONE [Suspect]
     Indication: ATRIAL FIBRILLATION
     Dosage: 300 MG X 1 DOSE, INTRAVENOUS,FEW MINUTES
     Route: 042
     Dates: start: 20031201, end: 20031201
  2. ASPIRIN [Concomitant]
  3. PARIET (RABEPRAZOLE) [Concomitant]

REACTIONS (6)
  - DEPRESSED LEVEL OF CONSCIOUSNESS [None]
  - DYSPNOEA [None]
  - HYPOTENSION [None]
  - MEDICATION ERROR [None]
  - RASH PRURITIC [None]
  - WHEEZING [None]
